FAERS Safety Report 12728495 (Version 1)
Quarter: 2016Q3

REPORT INFORMATION
  Report Type: Spontaneous
  Country: BR (occurrence: BR)
  Receive Date: 20160909
  Receipt Date: 20160909
  Transmission Date: 20161109
  Serious: Yes (Hospitalization)
  Sender: FDA-Public Use
  Company Number: BR-PFIZER INC-2016418605

PATIENT
  Age: 49 Year
  Sex: Female
  Weight: 60 kg

DRUGS (2)
  1. GEODON [Suspect]
     Active Substance: ZIPRASIDONE HYDROCHLORIDE\ZIPRASIDONE MESYLATE
     Indication: MENTAL DISORDER
     Dosage: 1 TABLET (STRENGTH OF 40 MG), DAILY
     Route: 048
     Dates: start: 2013
  2. BROMAZEPAM [Concomitant]
     Active Substance: BROMAZEPAM
     Indication: MENTAL DISORDER
     Dosage: UNK

REACTIONS (1)
  - Cholelithiasis [Unknown]
